FAERS Safety Report 8550407-6 (Version None)
Quarter: 2012Q3

REPORT INFORMATION
  Report Type: 
  Country: None (occurrence: None)
  Receive Date: 20120730
  Receipt Date: 20120720
  Transmission Date: 20120928
  Serious: Yes (Hospitalization)
  Sender: FDA-Public Use
  Company Number: JP-VERTEX PHARMACEUTICALS INC.-AE-2012-010811

PATIENT
  Age: 61 Year
  Sex: Male

DRUGS (6)
  1. TELAVIC (TELAPREVIR) [Suspect]
     Indication: HEPATITIS C
     Route: 048
     Dates: start: 20120705, end: 20120714
  2. CANDESARTAN CILEXETIL AND HYDROCHLOROTHIAZIDE [Concomitant]
     Route: 048
     Dates: end: 20120714
  3. MINIPRESS [Concomitant]
     Route: 048
     Dates: end: 20120714
  4. RIBAVIRIN [Concomitant]
     Route: 048
     Dates: start: 20120705, end: 20120714
  5. ADALAT [Concomitant]
     Route: 048
  6. PEG-INTRON [Concomitant]
     Route: 058
     Dates: start: 20120705, end: 20120714

REACTIONS (2)
  - BLOOD CREATININE INCREASED [None]
  - CONVULSION [None]
